FAERS Safety Report 9416664 (Version 1)
Quarter: 2013Q3

REPORT INFORMATION
  Report Type: Spontaneous
  Country: TW (occurrence: TW)
  Receive Date: 20130724
  Receipt Date: 20130724
  Transmission Date: 20140515
  Serious: Yes (Hospitalization)
  Sender: FDA-Public Use
  Company Number: TW-ASTELLAS-2013JP007828

PATIENT
  Age: 21 Year
  Sex: 0

DRUGS (1)
  1. MYCAMINE [Suspect]
     Dosage: UNK
     Route: 042

REACTIONS (1)
  - Bradycardia [Recovered/Resolved]
